FAERS Safety Report 4716366-9 (Version None)
Quarter: 2005Q3

REPORT INFORMATION
  Report Type: 
  Country: None (occurrence: None)
  Receive Date: 20050715
  Receipt Date: 20050715
  Transmission Date: 20060218
  Serious: Yes (Other)
  Sender: FDA-Public Use
  Company Number: None

PATIENT
  Sex: Male
  Weight: 43.0917 kg

DRUGS (2)
  1. OMNIPAQUE 140 [Suspect]
     Indication: HICCUPS
     Dosage: 1500 CC
     Dates: start: 20050623, end: 20050705
  2. OMNIPAQUE 140 [Suspect]
     Indication: URTICARIA
     Dosage: 1500 CC
     Dates: start: 20050623, end: 20050705

REACTIONS (1)
  - HYPERSENSITIVITY [None]
